FAERS Safety Report 7313423-8 (Version None)
Quarter: 2011Q1

REPORT INFORMATION
  Report Type: 
  Country: None (occurrence: None)
  Receive Date: 20110225
  Receipt Date: 20110217
  Transmission Date: 20110831
  Serious: No
  Sender: FDA-Public Use
  Company Number: US-PFIZER INC-2011036159

PATIENT
  Sex: Female
  Weight: 61.224 kg

DRUGS (1)
  1. CLEOCIN [Suspect]
     Indication: BACTERIAL INFECTION
     Dosage: 100 MG, UNK
     Route: 067
     Dates: start: 20110216, end: 20110216

REACTIONS (2)
  - BURNING SENSATION [None]
  - FEELING ABNORMAL [None]
